FAERS Safety Report 19221827 (Version 2)
Quarter: 2021Q2

REPORT INFORMATION
  Report Type: Other
  Country: TH (occurrence: TH)
  Receive Date: 20210505
  Receipt Date: 20210507
  Transmission Date: 20210717
  Serious: Yes (Death, Other)
  Sender: FDA-Public Use
  Company Number: TH-ROCHE-2824441

PATIENT
  Weight: 1.25 kg

DRUGS (1)
  1. MYCOPHENOLATE MOFETIL. [Suspect]
     Active Substance: MYCOPHENOLATE MOFETIL
     Indication: PRODUCT USED FOR UNKNOWN INDICATION
     Route: 050

REACTIONS (3)
  - Foetal death [Fatal]
  - Low birth weight baby [Unknown]
  - Foetal exposure during pregnancy [Unknown]
